FAERS Safety Report 6769780-4 (Version None)
Quarter: 2010Q2

REPORT INFORMATION
  Report Type: 
  Country: None (occurrence: None)
  Receive Date: 20100615
  Receipt Date: 20100607
  Transmission Date: 20101027
  Serious: Yes (Other)
  Sender: FDA-Public Use
  Company Number: CN-ROCHE-707970

PATIENT
  Age: 60 Year
  Sex: Male

DRUGS (1)
  1. PEGINTERFERON ALFA-2A [Suspect]
     Indication: HEPATITIS C
     Route: 058
     Dates: start: 20090919, end: 20100508

REACTIONS (2)
  - COR PULMONALE [None]
  - INTERSTITIAL LUNG DISEASE [None]
